FAERS Safety Report 24817197 (Version 2)
Quarter: 2025Q1

REPORT INFORMATION
  Report Type: Spontaneous
  Country: US (occurrence: US)
  Receive Date: 20250108
  Receipt Date: 20250112
  Transmission Date: 20250408
  Serious: No
  Sender: ROCHE
  Company Number: US-ROCHE-10000174023

PATIENT

DRUGS (6)
  1. AVASTIN [Suspect]
     Active Substance: BEVACIZUMAB
     Indication: Cystoid macular oedema
     Route: 065
  2. AVASTIN [Suspect]
     Active Substance: BEVACIZUMAB
     Indication: Diabetic retinopathy
  3. AVASTIN [Suspect]
     Active Substance: BEVACIZUMAB
     Indication: Neovascular age-related macular degeneration
  4. AVASTIN [Suspect]
     Active Substance: BEVACIZUMAB
     Indication: Choroidal neovascularisation
  5. AVASTIN [Suspect]
     Active Substance: BEVACIZUMAB
     Indication: Venous occlusion
  6. AVASTIN [Suspect]
     Active Substance: BEVACIZUMAB
     Indication: Venous occlusion

REACTIONS (2)
  - Off label use [Unknown]
  - No adverse event [Unknown]
